FAERS Safety Report 9306483 (Version 2)
Quarter: 2013Q2

REPORT INFORMATION
  Report Type: Spontaneous
  Country: US (occurrence: None)
  Receive Date: 20130506
  Receipt Date: 20130506
  Transmission Date: 20140414
  Serious: Yes (Other)
  Sender: FDA-Public Use
  Company Number: 2013035650

PATIENT
  Age: 65 Year
  Sex: Male

DRUGS (2)
  1. PRIVIGEN (IMMUNE GLOBULIN INTRAVENOUS (HUMAN) 10% LIQUID) [Suspect]
     Indication: HYPOGAMMAGLOBULINAEMIA
     Dosage: (50 ML/HR FOR 15 MINUTES THEN INCREASED EVERY 15 MINUTES UNTIL 200 ML/HR.)
     Route: 042
     Dates: start: 20130322, end: 20130322
  2. WARFARIN (WARFARIN) [Concomitant]

REACTIONS (2)
  - Dizziness [None]
  - Hypertension [None]
